FAERS Safety Report 15423666 (Version 1)
Quarter: 2018Q3

REPORT INFORMATION
  Report Type: Spontaneous
  Country: US (occurrence: US)
  Receive Date: 20180920
  Receipt Date: 20180920
  Transmission Date: 20181010
  Serious: Yes (Hospitalization)
  Sender: FDA-Public Use
  Company Number: None

PATIENT
  Sex: Female

DRUGS (17)
  1. LEVOTHYROXIN 200MCG [Concomitant]
  2. FLAXSEED OIL 100MG [Concomitant]
  3. METHFORMIN 500MG [Concomitant]
  4. SYNERCID 500MG [Concomitant]
  5. METHOTHREXATE 2.5MG [Concomitant]
  6. ENBREL [Suspect]
     Active Substance: ETANERCEPT
     Indication: RHEUMATOID ARTHRITIS
     Dosage: ?          OTHER FREQUENCY:ONCE A WEEK;?
     Route: 058
     Dates: start: 20170808
  7. ASPIRIN 81MG [Concomitant]
     Active Substance: ASPIRIN
  8. BUPROPION 300MG [Concomitant]
     Active Substance: BUPROPION
  9. OCELLA 3?0.03MG [Concomitant]
  10. VITAMIN D3 2000UNITS [Concomitant]
  11. BENAZEP/HCTZ 20?12.5 [Concomitant]
  12. NEXIUM 10MG [Concomitant]
  13. DULOXETINE 60MG [Concomitant]
     Active Substance: DULOXETINE
  14. ATORVASTATIN 40MG [Concomitant]
     Active Substance: ATORVASTATIN
  15. INVOKANA [Concomitant]
     Active Substance: CANAGLIFLOZIN
  16. FISH OIL 1000MG [Concomitant]
  17. PIOGLITAZONE 30MG [Concomitant]
     Active Substance: PIOGLITAZONE

REACTIONS (3)
  - Condition aggravated [None]
  - Drug dose omission [None]
  - Concussion [None]
